FAERS Safety Report 10990043 (Version 3)
Quarter: 2015Q2

REPORT INFORMATION
  Report Type: Spontaneous
  Country: US (occurrence: US)
  Receive Date: 20150406
  Receipt Date: 20150526
  Transmission Date: 20150821
  Serious: Yes (Other)
  Sender: FDA-Public Use
  Company Number: US-BAYER-2015-084790

PATIENT
  Age: 19 Year
  Sex: Female

DRUGS (1)
  1. SKYLA [Suspect]
     Active Substance: LEVONORGESTREL
     Indication: CONTRACEPTION
     Dosage: 14 MCG/24HR, CONT
     Route: 015
     Dates: start: 20140320

REACTIONS (12)
  - Back pain [None]
  - Device breakage [None]
  - Complication of device removal [None]
  - Abdominal tenderness [None]
  - Urinary tract infection [None]
  - Dysuria [None]
  - Device dislocation [None]
  - Abdominal pain upper [None]
  - Genital haemorrhage [None]
  - Amenorrhoea [None]
  - Abdominal pain [None]
  - Abdominal distension [None]
